FAERS Safety Report 7978836-X (Version None)
Quarter: 2011Q4

REPORT INFORMATION
  Report Type: 
  Country: None (occurrence: None)
  Receive Date: 20111214
  Receipt Date: 20111207
  Transmission Date: 20120403
  Serious: Yes (Hospitalization, Other)
  Sender: FDA-Public Use
  Company Number: AU-BRISTOL-MYERS SQUIBB COMPANY-16265480

PATIENT
  Age: 64 Year
  Sex: Male
  Weight: 110 kg

DRUGS (10)
  1. WARFARIN SODIUM [Concomitant]
  2. LASIX [Concomitant]
  3. LIPITOR [Concomitant]
  4. METHOTREXATE [Concomitant]
  5. DIGOXIN [Concomitant]
  6. ORENCIA [Suspect]
     Indication: RHEUMATOID ARTHRITIS
     Dosage: INTERRUPTED FROM 27APR10 TO 3MAY10 INT ON 9NOV11,6JUN11,14SEP11
     Route: 042
     Dates: start: 20081107
  7. ATACAND [Concomitant]
  8. NEXIUM [Concomitant]
  9. PLAQUENIL [Concomitant]
  10. PREDNISONE [Concomitant]

REACTIONS (7)
  - PNEUMOTHORAX [None]
  - UPPER RESPIRATORY TRACT INFECTION [None]
  - LOWER RESPIRATORY TRACT INFECTION [None]
  - SQUAMOUS CELL CARCINOMA [None]
  - PLEURISY [None]
  - BRONCHIECTASIS [None]
  - DIABETES MELLITUS [None]
